FAERS Safety Report 14184823 (Version 1)
Quarter: 2017Q4

REPORT INFORMATION
  Report Type: Report from Study
  Country: US (occurrence: US)
  Receive Date: 20171113
  Receipt Date: 20171113
  Transmission Date: 20180321
  Serious: Yes (Death, Hospitalization)
  Sender: FDA-Public Use
  Company Number: US-ACTELION-A-US2017-156181

PATIENT
  Age: 70 Year
  Sex: Female
  Weight: 68.48 kg

DRUGS (5)
  1. VENTAVIS [Suspect]
     Active Substance: ILOPROST
     Indication: PULMONARY ARTERIAL HYPERTENSION
     Dosage: 5 MCG, 6-9X/DAILY
     Route: 055
     Dates: start: 20170622
  2. OPSUMIT [Suspect]
     Active Substance: MACITENTAN
     Indication: PULMONARY ARTERIAL HYPERTENSION
     Dosage: 10 MG, QD
     Route: 048
     Dates: start: 20151201
  3. REVATIO [Concomitant]
     Active Substance: SILDENAFIL CITRATE
  4. OXYGEN. [Concomitant]
     Active Substance: OXYGEN
  5. BUMEX [Concomitant]
     Active Substance: BUMETANIDE

REACTIONS (15)
  - Dysgeusia [Unknown]
  - Fluid retention [Recovering/Resolving]
  - Diarrhoea [Unknown]
  - Pulmonary arterial hypertension [Unknown]
  - Renal impairment [Not Recovered/Not Resolved]
  - Headache [Unknown]
  - Paranasal sinus hypersecretion [Unknown]
  - Peripheral swelling [Recovering/Resolving]
  - Rash pruritic [Unknown]
  - Fluid overload [Unknown]
  - Fatigue [Unknown]
  - Dyspnoea [Unknown]
  - Cough [Unknown]
  - Rash erythematous [Unknown]
  - Death [Fatal]

NARRATIVE: CASE EVENT DATE: 201707
